FAERS Safety Report 25002840 (Version 2)
Quarter: 2025Q1

REPORT INFORMATION
  Report Type: Spontaneous
  Country: US (occurrence: US)
  Receive Date: 20250224
  Receipt Date: 20250307
  Transmission Date: 20250409
  Serious: Yes (Death, Hospitalization)
  Sender: TEVA
  Company Number: US-TEVA-VS-3300322

PATIENT
  Age: 56 Year
  Sex: Female

DRUGS (4)
  1. LINEZOLID [Suspect]
     Active Substance: LINEZOLID
     Indication: Enterococcal infection
     Route: 042
  2. MEROPENEM [Concomitant]
     Active Substance: MEROPENEM
     Indication: Abdominal infection
     Route: 042
  3. LINEZOLID [Suspect]
     Active Substance: LINEZOLID
     Indication: Abdominal infection
     Route: 048
  4. CEFDINIR [Concomitant]
     Active Substance: CEFDINIR
     Indication: Abdominal infection
     Route: 048

REACTIONS (3)
  - Pancreatitis acute [Fatal]
  - Hypoglycaemia [Fatal]
  - Lactic acidosis [Fatal]
